FAERS Safety Report 8418487-6 (Version None)
Quarter: 2012Q2

REPORT INFORMATION
  Report Type: 
  Country: None (occurrence: None)
  Receive Date: 20120530
  Receipt Date: 20120420
  Transmission Date: 20120825
  Serious: Yes (Other)
  Sender: FDA-Public Use
  Company Number: 963680

PATIENT
  Age: 4 Year
  Sex: Female

DRUGS (1)
  1. ANTIBACTERIAL 27 HAND GEL VANILLA SPRINKLE COOKIE [Suspect]

REACTIONS (1)
  - ANAPHYLACTIC REACTION [None]
